FAERS Safety Report 11752264 (Version 1)
Quarter: 2015Q4

REPORT INFORMATION
  Report Type: Spontaneous
  Country: JP (occurrence: JP)
  Receive Date: 20151118
  Receipt Date: 20151118
  Transmission Date: 20160304
  Serious: Yes (Hospitalization)
  Sender: FDA-Public Use
  Company Number: PHJP1999JP000731

PATIENT
  Age: 55 Year
  Sex: Female
  Weight: 44 kg

DRUGS (8)
  1. DEPAS [Concomitant]
     Active Substance: ETIZOLAM
     Indication: INSOMNIA
     Route: 048
     Dates: start: 199901, end: 19990509
  2. RISAMOL [Concomitant]
     Indication: PRODUCT USED FOR UNKNOWN INDICATION
     Dosage: 7.5 MG, UNK
     Route: 048
     Dates: start: 199901, end: 19990509
  3. NOVOLET 30R [Concomitant]
     Indication: DIABETES MELLITUS
     Route: 058
     Dates: start: 19990507
  4. TASMOLIN//BIPERIDEN HYDROCHLORIDE [Concomitant]
     Indication: PRODUCT USED FOR UNKNOWN INDICATION
     Dosage: 3 MG, UNK
     Route: 048
     Dates: start: 199901, end: 19990509
  5. PURSENNID H-EXG+TAB [Suspect]
     Active Substance: SENNOSIDES
     Indication: CONSTIPATION
     Dosage: 5 DF (5 TABLETS PER DAY)
     Route: 048
     Dates: start: 199901, end: 19990512
  6. FORIT [Concomitant]
     Active Substance: OXYPERTINE
     Indication: PRODUCT USED FOR UNKNOWN INDICATION
     Route: 048
     Dates: start: 199901, end: 19990509
  7. PURSENNID H-EXG+TAB [Suspect]
     Active Substance: SENNOSIDES
     Indication: BOWEL MOVEMENT IRREGULARITY
  8. MIRADOL//SULPIRIDE [Concomitant]
     Indication: PRODUCT USED FOR UNKNOWN INDICATION
     Route: 048
     Dates: start: 199901, end: 19990509

REACTIONS (3)
  - Muscular weakness [Recovered/Resolved]
  - Hypokalaemia [Recovered/Resolved]
  - Dysstasia [Unknown]

NARRATIVE: CASE EVENT DATE: 19990327
